FAERS Safety Report 13881897 (Version 4)
Quarter: 2018Q1

REPORT INFORMATION
  Report Type: Spontaneous
  Country: IT (occurrence: IT)
  Receive Date: 20170818
  Receipt Date: 20180330
  Transmission Date: 20180508
  Serious: Yes (Disabling)
  Sender: FDA-Public Use
  Company Number: IT-009507513-1708ITA006354

PATIENT
  Age: 44 Year
  Sex: Female
  Weight: 65 kg

DRUGS (1)
  1. NUVARING [Suspect]
     Active Substance: ETHINYL ESTRADIOL\ETONOGESTREL
     Indication: CONTRACEPTION
     Dosage: UNK
     Route: 067
     Dates: start: 20050101, end: 20141201

REACTIONS (2)
  - Cerebral ischaemia [Recovered/Resolved with Sequelae]
  - Hemianaesthesia [Recovered/Resolved with Sequelae]

NARRATIVE: CASE EVENT DATE: 20150101
